FAERS Safety Report 8346187-X (Version None)
Quarter: 2012Q2

REPORT INFORMATION
  Report Type: 
  Country: None (occurrence: None)
  Receive Date: 20120507
  Receipt Date: 20120424
  Transmission Date: 20120825
  Serious: Yes (Hospitalization)
  Sender: FDA-Public Use
  Company Number: UTC-016212

PATIENT
  Age: 57 Year
  Sex: Female

DRUGS (4)
  1. TYVASO [Suspect]
     Indication: PULMONARY HYPERTENSION
     Dosage: 216 MCG (54 MCG, 4 IN 1 D), INHALATION 192 MCG (48 MCG, 4 IN 1 D), INHALATION
     Route: 055
     Dates: start: 20111212
  2. TYVASO [Suspect]
     Indication: SCLERODERMA
     Dosage: 216 MCG (54 MCG, 4 IN 1 D), INHALATION 192 MCG (48 MCG, 4 IN 1 D), INHALATION
     Route: 055
     Dates: start: 20111212
  3. COUMADIN [Concomitant]
  4. REVATIO [Concomitant]

REACTIONS (3)
  - HYPOTENSION [None]
  - ASTHENIA [None]
  - DYSPNOEA [None]
